FAERS Safety Report 19611295 (Version 1)
Quarter: 2021Q3

REPORT INFORMATION
  Report Type: Spontaneous
  Country: US (occurrence: US)
  Receive Date: 20210726
  Receipt Date: 20210726
  Transmission Date: 20211014
  Serious: No
  Sender: FDA-Public Use
  Company Number: US-ENDO PHARMACEUTICALS INC-2020-005550

PATIENT
  Sex: Male
  Weight: 86.17 kg

DRUGS (3)
  1. EDEX [Suspect]
     Active Substance: ALPROSTADIL
     Indication: ERECTILE DYSFUNCTION
     Dosage: 40 UMCG, UNKNOWN
     Route: 065
     Dates: start: 202004
  2. EDEX [Suspect]
     Active Substance: ALPROSTADIL
     Indication: ERECTILE DYSFUNCTION
     Dosage: 40 UMCG, UNKNOWN
     Route: 065
     Dates: start: 202004
  3. EDEX [Suspect]
     Active Substance: ALPROSTADIL
     Indication: ERECTILE DYSFUNCTION
     Dosage: 40 UMCG, UNKNOWN
     Route: 065
     Dates: start: 202004

REACTIONS (2)
  - Drug ineffective [Unknown]
  - Erection increased [Unknown]

NARRATIVE: CASE EVENT DATE: 2020
